FAERS Safety Report 22332822 (Version 1)
Quarter: 2023Q2

REPORT INFORMATION
  Report Type: Spontaneous
  Country: IN (occurrence: IN)
  Receive Date: 20230517
  Receipt Date: 20230517
  Transmission Date: 20230722
  Serious: Yes (Other)
  Sender: FDA-Public Use
  Company Number: IN-TORRENT-00003277

PATIENT
  Age: 32 Year
  Sex: Female

DRUGS (5)
  1. RISPERIDONE [Suspect]
     Active Substance: RISPERIDONE
     Indication: Product used for unknown indication
     Dosage: UP TO 8 MG
     Route: 065
  2. MOMETASONE [Concomitant]
     Active Substance: MOMETASONE
     Indication: Eczema asteatotic
     Dosage: UNKNOWN
     Route: 061
  3. PARAFFIN [Concomitant]
     Active Substance: PARAFFIN
     Indication: Eczema asteatotic
     Dosage: UNKNOWN
     Route: 065
  4. TRIHEXYPHENIDYL [Concomitant]
     Active Substance: TRIHEXYPHENIDYL
     Indication: Product used for unknown indication
     Dosage: UNKNOWN
     Route: 065
  5. vitamin B12 supplements [Concomitant]
     Indication: Product used for unknown indication
     Dosage: UNKNOWN
     Route: 065

REACTIONS (2)
  - Pancytopenia [Recovered/Resolved]
  - False positive investigation result [Recovered/Resolved]
